FAERS Safety Report 6878755-6 (Version None)
Quarter: 2010Q3

REPORT INFORMATION
  Report Type: 
  Country: None (occurrence: None)
  Receive Date: 20100728
  Receipt Date: 20100718
  Transmission Date: 20110219
  Serious: Yes (Hospitalization, Other)
  Sender: FDA-Public Use
  Company Number: US-SANOFI-AVENTIS-2010SA042922

PATIENT
  Age: 59 Year
  Sex: Male

DRUGS (4)
  1. LANTUS [Suspect]
     Indication: TYPE 2 DIABETES MELLITUS
     Dosage: DOSE:60 UNIT(S)
     Route: 058
     Dates: start: 20090101
  2. HUMULIN 70/30 [Concomitant]
     Dates: start: 20090101
  3. METFORMIN HCL [Concomitant]
     Dates: start: 20090101
  4. NOVOLOG [Concomitant]
     Dates: start: 20090101

REACTIONS (5)
  - DYSPNOEA [None]
  - HYPERHIDROSIS [None]
  - LUNG DISORDER [None]
  - PNEUMONIA [None]
  - RASH GENERALISED [None]
